FAERS Safety Report 9474450 (Version 2)
Quarter: 2013Q3

REPORT INFORMATION
  Report Type: Spontaneous
  Country: FR (occurrence: FR)
  Receive Date: 20130823
  Receipt Date: 20130823
  Transmission Date: 20140515
  Serious: Yes (Other)
  Sender: FDA-Public Use
  Company Number: FR-PFIZER INC-2013213878

PATIENT
  Sex: Male

DRUGS (1)
  1. ATORVASTATINE PFIZER [Suspect]
     Dosage: 10 MG, UNK

REACTIONS (2)
  - Rash generalised [Unknown]
  - Rash pustular [Unknown]
